FAERS Safety Report 19010635 (Version 2)
Quarter: 2021Q2

REPORT INFORMATION
  Report Type: Report from Study
  Country: US (occurrence: US)
  Receive Date: 20210315
  Receipt Date: 20210611
  Transmission Date: 20210717
  Serious: Yes (Hospitalization)
  Sender: FDA-Public Use
  Company Number: US-JNJFOC-20210308059

PATIENT
  Age: 34 Year
  Sex: Male
  Weight: 70 kg

DRUGS (3)
  1. EPOPROSTENOL SODIUM. [Suspect]
     Active Substance: EPOPROSTENOL SODIUM
     Indication: PULMONARY HYPERTENSION
     Route: 065
  2. ADCIRCA [Concomitant]
     Active Substance: TADALAFIL
  3. EPOPROSTENOL SODIUM. [Suspect]
     Active Substance: EPOPROSTENOL SODIUM
     Route: 042

REACTIONS (1)
  - Somnolence [Unknown]
